FAERS Safety Report 4661853-5 (Version None)
Quarter: 2005Q2

REPORT INFORMATION
  Report Type: 
  Country: None (occurrence: None)
  Receive Date: 20050513
  Receipt Date: 20050505
  Transmission Date: 20051028
  Serious: Yes (Life-Threatening, Hospitalization)
  Sender: FDA-Public Use
  Company Number: PHBS2005FR06334

PATIENT
  Age: 61 Year
  Sex: Female

DRUGS (5)
  1. ANAFRANIL CAP [Suspect]
     Dosage: 25 MG, QID
     Route: 048
     Dates: end: 20050326
  2. TEGRETOL [Suspect]
     Indication: DEPRESSION
     Dosage: 400 MG/DAY
     Route: 048
     Dates: end: 20050221
  3. LAROXYL [Suspect]
     Indication: DEPRESSION
     Dosage: 150 MG, BID
     Route: 048
     Dates: end: 20050221
  4. IMOVANE [Suspect]
     Indication: SLEEP DISORDER
     Dosage: 7.5 MG/D
     Route: 048
     Dates: end: 20050221
  5. VALIUM [Suspect]
     Indication: ANXIETY
     Dosage: UNK, TID
     Route: 048
     Dates: end: 20050221

REACTIONS (3)
  - IRON DEFICIENCY ANAEMIA [None]
  - MICROCYTIC ANAEMIA [None]
  - PNEUMONITIS [None]
